FAERS Safety Report 15312287 (Version 2)
Quarter: 2018Q4

REPORT INFORMATION
  Report Type: Spontaneous
  Country: US (occurrence: US)
  Receive Date: 20180823
  Receipt Date: 20181010
  Transmission Date: 20190204
  Serious: No
  Sender: FDA-Public Use
  Company Number: CN-ASTRAZENECA-2018SF06227

PATIENT
  Age: 83 Year
  Sex: Female

DRUGS (2)
  1. NEXIUM 24HR [Suspect]
     Active Substance: ESOMEPRAZOLE MAGNESIUM
     Indication: GASTROOESOPHAGEAL REFLUX DISEASE
     Route: 048
  2. BABY ASPIRIN [Concomitant]
     Active Substance: ASPIRIN
     Dosage: UNK

REACTIONS (5)
  - Accidental exposure to product [Not Recovered/Not Resolved]
  - Product physical issue [Not Recovered/Not Resolved]
  - Hypoacusis [Unknown]
  - Poor quality product administered [Not Recovered/Not Resolved]
  - Product use issue [Not Recovered/Not Resolved]
